FAERS Safety Report 5214113-8 (Version None)
Quarter: 2007Q1

REPORT INFORMATION
  Report Type: 
  Country: None (occurrence: None)
  Receive Date: 20070117
  Receipt Date: 20070102
  Transmission Date: 20070707
  Serious: Yes (Hospitalization)
  Sender: FDA-Public Use
  Company Number: 26213

PATIENT
  Age: 74 Year
  Sex: Male
  Weight: 89.8122 kg

DRUGS (10)
  1. NIASPAN [Suspect]
     Indication: HYPERLIPIDAEMIA
     Dosage: 500 MG QHS PO
     Route: 048
     Dates: start: 20061215, end: 20061223
  2. SIMVASTATIN [Concomitant]
  3. LYRICA [Concomitant]
  4. LANTUS [Concomitant]
  5. NOVOLOG [Concomitant]
  6. LISINOPRIL [Concomitant]
  7. CYCLOSPORINE [Concomitant]
  8. OMEPRAZOLE [Concomitant]
  9. GANCICLOVIR [Concomitant]
  10. TEMAZEPAM [Concomitant]

REACTIONS (4)
  - ARTHRALGIA [None]
  - BACK PAIN [None]
  - HEPATITIS TOXIC [None]
  - RHABDOMYOLYSIS [None]
